FAERS Safety Report 6371609-3 (Version None)
Quarter: 2009Q3

REPORT INFORMATION
  Report Type: 
  Country: None (occurrence: None)
  Receive Date: 20090923
  Receipt Date: 20080311
  Transmission Date: 20100115
  Serious: Yes (Hospitalization)
  Sender: FDA-Public Use
  Company Number: US-ASTRAZENECA-2008UW00665

PATIENT
  Age: 377 Month
  Sex: Female
  Weight: 74.8 kg

DRUGS (17)
  1. SEROQUEL [Suspect]
     Indication: SLEEP APNOEA SYNDROME
     Dosage: VARIOUS DOSES, INCLUDING BUT NOT LIMITED TO 100 MG, 200 MG, 300 MG
     Route: 048
     Dates: start: 20020101, end: 20060101
  2. SEROQUEL [Suspect]
     Indication: BIPOLAR DISORDER
     Dosage: VARIOUS DOSES, INCLUDING BUT NOT LIMITED TO 100 MG, 200 MG, 300 MG
     Route: 048
     Dates: start: 20020101, end: 20060101
  3. SEROQUEL [Suspect]
     Indication: DEPRESSION
     Dosage: VARIOUS DOSES, INCLUDING BUT NOT LIMITED TO 100 MG, 200 MG, 300 MG
     Route: 048
     Dates: start: 20020101, end: 20060101
  4. SEROQUEL [Suspect]
     Dosage: 25 MG-300 MG
     Route: 048
     Dates: start: 20040914
  5. SEROQUEL [Suspect]
     Dosage: 25 MG-300 MG
     Route: 048
     Dates: start: 20040914
  6. SEROQUEL [Suspect]
     Dosage: 25 MG-300 MG
     Route: 048
     Dates: start: 20040914
  7. ABILIFY [Concomitant]
     Dates: start: 20070501
  8. METFORMIN HCL [Concomitant]
     Route: 048
  9. GLIPIZIDE [Concomitant]
     Route: 048
  10. ZOCOR [Concomitant]
     Route: 048
  11. HYDROCHLOROTHIAZIDE [Concomitant]
  12. GLYBURIDE [Concomitant]
  13. DETROL LA [Concomitant]
     Route: 048
  14. KLONOPIN [Concomitant]
     Route: 048
  15. LISINOPRIL [Concomitant]
  16. ACTOS [Concomitant]
  17. CLINDAMYCIN [Concomitant]
     Route: 048

REACTIONS (4)
  - BACK PAIN [None]
  - DIABETES MELLITUS [None]
  - DIABETIC HYPEROSMOLAR COMA [None]
  - MAMMOPLASTY [None]
